FAERS Safety Report 10094053 (Version 1)
Quarter: 2014Q2

REPORT INFORMATION
  Report Type: Spontaneous
  Country: FR (occurrence: FR)
  Receive Date: 20140422
  Receipt Date: 20140422
  Transmission Date: 20141212
  Serious: Yes (Hospitalization)
  Sender: FDA-Public Use
  Company Number: FR-PFIZER INC-2014105956

PATIENT
  Age: 41 Year
  Sex: Male

DRUGS (10)
  1. TAZOCILLINE [Suspect]
     Dosage: UNK
     Route: 042
     Dates: start: 20140122, end: 20140123
  2. TAZOCILLINE [Suspect]
     Dosage: UNK
     Route: 042
     Dates: start: 20140130, end: 20140205
  3. VANCOMYCINE [Suspect]
     Dosage: UNK
     Route: 042
     Dates: start: 20140130, end: 20140205
  4. CIPROFLOXACIN [Suspect]
     Dosage: UNK
     Route: 042
     Dates: start: 20140130, end: 20140205
  5. CEFTRIAXONE MYLAN [Suspect]
     Dosage: UNK
     Route: 042
     Dates: start: 20140121, end: 20140122
  6. CEFTRIAXONE MYLAN [Suspect]
     Dosage: UNK
     Route: 042
     Dates: start: 20140123, end: 20140130
  7. OFLOXACINE MYLAN [Concomitant]
     Dosage: UNK
     Route: 042
     Dates: start: 20140121, end: 20140122
  8. AMIKACIN [Concomitant]
     Dosage: UNK
     Route: 042
     Dates: start: 20140122, end: 20140123
  9. AOTAL [Concomitant]
     Indication: ALCOHOL ABUSE
     Dosage: 666 MG, 3X/DAY
     Route: 048
     Dates: start: 201310
  10. SERESTA [Concomitant]
     Dosage: AS NEEDED
     Route: 048

REACTIONS (1)
  - Drug reaction with eosinophilia and systemic symptoms [Recovering/Resolving]
